FAERS Safety Report 8193812-2 (Version None)
Quarter: 2012Q1

REPORT INFORMATION
  Report Type: 
  Country: None (occurrence: None)
  Receive Date: 20120308
  Receipt Date: 20120301
  Transmission Date: 20120608
  Serious: Yes (Life-Threatening, Hospitalization, Other)
  Sender: FDA-Public Use
  Company Number: PHHY2012ES017822

PATIENT
  Age: 67 Year
  Sex: Male

DRUGS (6)
  1. MANIDON [Concomitant]
     Indication: HYPERTENSION
     Dosage: 160 MG, DAILY
     Route: 048
     Dates: end: 20111019
  2. DIGOXIN [Concomitant]
     Indication: ATRIAL FIBRILLATION
     Dosage: 1.5 MG, QW
     Route: 048
     Dates: end: 20111019
  3. SIMVASTATIN [Suspect]
     Indication: HYPERLIPIDAEMIA
     Dosage: 20 MG, DAILY
     Route: 048
  4. BOI K [Concomitant]
     Dates: end: 20111019
  5. SINTROM [Interacting]
     Indication: ATRIAL FIBRILLATION
     Route: 048
  6. OMEPRAZOLE [Concomitant]
     Indication: PROPHYLAXIS
     Dosage: 20 MG, QD
     Route: 048

REACTIONS (6)
  - CEREBRAL HAEMATOMA [None]
  - CEREBRAL HAEMORRHAGE [None]
  - CRANIOCEREBRAL INJURY [None]
  - INTERNATIONAL NORMALISED RATIO INCREASED [None]
  - DRUG INTERACTION [None]
  - BRAIN CONTUSION [None]
